FAERS Safety Report 5477557-5 (Version None)
Quarter: 2007Q4

REPORT INFORMATION
  Report Type: 
  Country: None (occurrence: None)
  Receive Date: 20071002
  Receipt Date: 20070921
  Transmission Date: 20080405
  Serious: Yes (Death, Other)
  Sender: FDA-Public Use
  Company Number: 2007-03168

PATIENT
  Age: 63 Year
  Sex: Female

DRUGS (1)
  1. VELCADE [Suspect]
     Indication: MULTIPLE MYELOMA
     Dates: start: 20061223, end: 20070101

REACTIONS (5)
  - ANAEMIA [None]
  - HERPES ZOSTER [None]
  - MYOCARDIAL INFARCTION [None]
  - PNEUMONIA [None]
  - THROMBOCYTOPENIA [None]
